FAERS Safety Report 12494186 (Version 1)
Quarter: 2016Q2

REPORT INFORMATION
  Report Type: Spontaneous
  Country: FR (occurrence: FR)
  Receive Date: 20160623
  Receipt Date: 20160623
  Transmission Date: 20160815
  Serious: Yes (Life-Threatening)
  Sender: FDA-Public Use
  Company Number: FR-ABBVIE-16P-056-1658999-00

PATIENT
  Age: 82 Year
  Sex: Female

DRUGS (6)
  1. CEFAZOLINE [Suspect]
     Active Substance: CEFAZOLIN SODIUM
     Indication: ANTIBIOTIC PROPHYLAXIS
     Route: 042
     Dates: start: 20150515, end: 20150515
  2. SEVORANE [Suspect]
     Active Substance: SEVOFLURANE
     Indication: INDUCTION OF ANAESTHESIA
     Route: 055
     Dates: start: 20150515, end: 20150515
  3. MIDAZOLAM [Suspect]
     Active Substance: MIDAZOLAM\MIDAZOLAM HYDROCHLORIDE
     Indication: ANAESTHETIC PREMEDICATION
     Route: 042
     Dates: start: 20150515, end: 20150515
  4. DIPRIVAN [Suspect]
     Active Substance: PROPOFOL
     Indication: INDUCTION OF ANAESTHESIA
     Route: 042
     Dates: start: 20150515, end: 20150515
  5. CISATRACURIUM. [Suspect]
     Active Substance: CISATRACURIUM
     Indication: INDUCTION OF ANAESTHESIA
     Route: 042
     Dates: start: 20150515, end: 20150515
  6. SUFENTANIL [Suspect]
     Active Substance: SUFENTANIL
     Indication: INDUCTION OF ANAESTHESIA
     Route: 042
     Dates: start: 20150515, end: 20150515

REACTIONS (3)
  - Anaphylactic shock [Recovered/Resolved]
  - Cardiogenic shock [Recovered/Resolved]
  - Atrial fibrillation [Recovered/Resolved]

NARRATIVE: CASE EVENT DATE: 20150515
